FAERS Safety Report 7995377-4 (Version None)
Quarter: 2011Q4

REPORT INFORMATION
  Report Type: 
  Country: None (occurrence: None)
  Receive Date: 20111220
  Receipt Date: 20111207
  Transmission Date: 20120403
  Serious: Yes (Other)
  Sender: FDA-Public Use
  Company Number: AU-B.I. PHARMACEUTICALS,INC./RIDGEFIELD-2011-EU-01200AU

PATIENT
  Sex: Female
  Weight: 74 kg

DRUGS (6)
  1. DOXAZOSIN MESYLATE [Concomitant]
     Indication: HYPERTENSION
     Dosage: 2MG, 1/2 OD
  2. METOPROLOL TARTRATE [Concomitant]
     Indication: HYPERTENSION
     Dosage: 47,5MG, T OD
  3. ATORVASTATIN [Concomitant]
     Indication: HYPERTENSION
     Dosage: 10 OD
  4. CANDESARTAN CILEXETIL [Concomitant]
     Indication: HYPERTENSION
     Dosage: 32MG, T OD
  5. CARDIZEM CD [Concomitant]
     Indication: HYPERTENSION
     Dosage: 360 MG, OD
  6. PRADAXA [Suspect]
     Indication: ATRIAL FIBRILLATION
     Dosage: 300 MG
     Dates: start: 20110818, end: 20111019

REACTIONS (2)
  - PAIN [None]
  - DYSPNOEA [None]
